FAERS Safety Report 17014187 (Version 1)
Quarter: 2019Q4

REPORT INFORMATION
  Report Type: Spontaneous
  Country: GB (occurrence: GB)
  Receive Date: 20191111
  Receipt Date: 20191111
  Transmission Date: 20200122
  Serious: Yes (Hospitalization, Other)
  Sender: FDA-Public Use
  Company Number: GB-AUROBINDO-AUR-APL-2019-071022

PATIENT
  Age: 83 Year
  Weight: 71 kg

DRUGS (1)
  1. ALENDRONIC ACID [Suspect]
     Active Substance: ALENDRONIC ACID
     Indication: PRODUCT USED FOR UNKNOWN INDICATION
     Dosage: 70 MILLIGRAM
     Route: 048
     Dates: start: 20171129, end: 20171214

REACTIONS (2)
  - Gastrointestinal haemorrhage [Unknown]
  - Oesophageal ulcer [Unknown]

NARRATIVE: CASE EVENT DATE: 20171214
